FAERS Safety Report 5464341-1 (Version None)
Quarter: 2007Q3

REPORT INFORMATION
  Report Type: 
  Country: None (occurrence: None)
  Receive Date: 20070921
  Receipt Date: 20070912
  Transmission Date: 20080115
  Serious: Yes (Other)
  Sender: FDA-Public Use
  Company Number: CN-ROCHE-517272

PATIENT
  Sex: Female

DRUGS (2)
  1. PEG-INTERFERON A-2A (RO 25-8310) [Suspect]
     Indication: HEPATITIS B
     Dosage: DOSAGE: 180 MCG WEEKLY.
     Route: 058
     Dates: start: 20070724, end: 20070901
  2. LAMIVUDINE [Concomitant]
     Indication: HEPATITIS B

REACTIONS (2)
  - ALANINE AMINOTRANSFERASE INCREASED [None]
  - JAUNDICE [None]
